FAERS Safety Report 9572752 (Version 1)
Quarter: 2013Q4

REPORT INFORMATION
  Report Type: Spontaneous
  Country: RS (occurrence: RS)
  Receive Date: 20131001
  Receipt Date: 20131001
  Transmission Date: 20140711
  Serious: Yes (Other)
  Sender: FDA-Public Use
  Company Number: RS-ACTAVIS-2013-17340

PATIENT
  Age: 69 Year
  Sex: Female

DRUGS (1)
  1. RANISAN [Suspect]
     Dosage: UNK
     Route: 042
     Dates: start: 20130912

REACTIONS (1)
  - Erythema [Recovered/Resolved]
